FAERS Safety Report 13664434 (Version 1)
Quarter: 2017Q2

REPORT INFORMATION
  Report Type: Spontaneous
  Country: US (occurrence: US)
  Receive Date: 20170619
  Receipt Date: 20170619
  Transmission Date: 20170830
  Serious: No
  Sender: FDA-Public Use
  Company Number: US-PFIZER INC-2017263169

PATIENT
  Age: 83 Year
  Sex: Female

DRUGS (2)
  1. DETROL [Suspect]
     Active Substance: TOLTERODINE TARTRATE
     Dosage: 4 MG, UNK
  2. DETROL [Suspect]
     Active Substance: TOLTERODINE TARTRATE
     Dosage: 2 MG, UNK

REACTIONS (7)
  - Ocular discomfort [Recovering/Resolving]
  - Vision blurred [Unknown]
  - Headache [Unknown]
  - Pain [Unknown]
  - Eye pain [Recovering/Resolving]
  - Malaise [Unknown]
  - Dry eye [Unknown]
